FAERS Safety Report 7518400-X (Version None)
Quarter: 2011Q2

REPORT INFORMATION
  Report Type: 
  Country: None (occurrence: None)
  Receive Date: 20110512
  Receipt Date: 20110216
  Transmission Date: 20111010
  Serious: No
  Sender: FDA-Public Use
  Company Number: 1000018869

PATIENT
  Age: 48 Year
  Sex: Female

DRUGS (1)
  1. SAVELLA [Suspect]

REACTIONS (2)
  - NAUSEA [None]
  - DIARRHOEA [None]
